FAERS Safety Report 5745786-9 (Version None)
Quarter: 2008Q2

REPORT INFORMATION
  Report Type: 
  Country: None (occurrence: None)
  Receive Date: 20080521
  Receipt Date: 20080512
  Transmission Date: 20081010
  Serious: No
  Sender: FDA-Public Use
  Company Number: US-BAXTER-2008BH005087

PATIENT
  Age: 17 Year
  Sex: Male
  Weight: 53 kg

DRUGS (6)
  1. GAMMAGARD S/D [Suspect]
     Indication: CONGENITAL HYPOGAMMAGLOBULINAEMIA
     Dosage: DOSE UNIT:UNKNOWN
     Route: 042
     Dates: start: 19980101, end: 19990101
  2. GAMMAGARD S/D [Suspect]
     Dosage: DOSE UNIT:UNKNOWN
     Route: 042
     Dates: start: 19980101, end: 19990101
  3. GAMMAGARD S/D [Suspect]
     Route: 042
     Dates: start: 19990101
  4. GAMMAGARD S/D [Suspect]
     Route: 042
     Dates: start: 19990101
  5. VITAMIN CAP [Concomitant]
     Indication: DRUG USE FOR UNKNOWN INDICATION
     Dosage: DOSE UNIT:UNKNOWN
     Route: 048
  6. COUGH MEDICINE [Concomitant]
     Indication: COUGH
     Dosage: DOSE UNIT:UNKNOWN
     Route: 048

REACTIONS (1)
  - HEPATITIS B ANTIBODY POSITIVE [None]
